FAERS Safety Report 7313574-8 (Version None)
Quarter: 2011Q1

REPORT INFORMATION
  Report Type: 
  Country: None (occurrence: None)
  Receive Date: 20110218
  Receipt Date: 20110218
  Transmission Date: 20110831
  Serious: Yes (Life-Threatening, Hospitalization)
  Sender: FDA-Public Use
  Company Number: None

PATIENT
  Sex: Male
  Weight: 85 kg

DRUGS (1)
  1. PRADAXA [Suspect]
     Indication: ATRIAL FIBRILLATION
     Dosage: 150MG TWICE DAILY PO BEGAN EARLY DECEMBER '10
     Route: 048
     Dates: start: 20101201

REACTIONS (8)
  - DYSPNOEA [None]
  - COAGULOPATHY [None]
  - ASPIRATION [None]
  - PERICARDIAL EFFUSION [None]
  - URINARY RETENTION [None]
  - CYANOSIS [None]
  - CARDIAC ARREST [None]
  - RENAL FAILURE ACUTE [None]
